FAERS Safety Report 25764330 (Version 1)
Quarter: 2025Q3

REPORT INFORMATION
  Report Type: Spontaneous
  Country: US (occurrence: US)
  Receive Date: 20250905
  Receipt Date: 20250905
  Transmission Date: 20251020
  Serious: No
  Sender: DOMPE FARMACEUTICI
  Company Number: US-FARMAPROD-202501-0307

PATIENT
  Age: 50 Year
  Sex: Female

DRUGS (5)
  1. OXERVATE [Suspect]
     Active Substance: CENEGERMIN-BKBJ
     Indication: Neurotrophic keratopathy
     Route: 047
     Dates: start: 20250120
  2. GLYBURIDE [Concomitant]
     Active Substance: GLYBURIDE
  3. MOUNJARO [Concomitant]
     Active Substance: TIRZEPATIDE
  4. METFORMIN HYDROCHLORIDE [Concomitant]
     Active Substance: METFORMIN HYDROCHLORIDE
  5. SYSTANE GEL [Concomitant]

REACTIONS (4)
  - Eyelid margin crusting [Unknown]
  - Eye pain [Unknown]
  - Periorbital swelling [Unknown]
  - Photophobia [Unknown]

NARRATIVE: CASE EVENT DATE: 20250129
